FAERS Safety Report 10229346 (Version 1)
Quarter: 2014Q2

REPORT INFORMATION
  Report Type: Spontaneous
  Country: US (occurrence: US)
  Receive Date: 20140611
  Receipt Date: 20140611
  Transmission Date: 20141212
  Serious: No
  Sender: FDA-Public Use
  Company Number: US-009507513-1406USA000350

PATIENT
  Age: 23 Year
  Sex: Female
  Weight: 79.37 kg

DRUGS (1)
  1. NEXPLANON [Suspect]
     Indication: CONTRACEPTION
     Dosage: 1 ROD FOR 3 YEARS
     Route: 059
     Dates: start: 2013

REACTIONS (4)
  - Vasodilatation [Unknown]
  - Metrorrhagia [Unknown]
  - Muscle spasms [Unknown]
  - Weight increased [Unknown]
